FAERS Safety Report 25734215 (Version 1)
Quarter: 2025Q3

REPORT INFORMATION
  Report Type: Spontaneous
  Country: CR (occurrence: CR)
  Receive Date: 20250828
  Receipt Date: 20250828
  Transmission Date: 20251021
  Serious: Yes (Other)
  Sender: ROCHE
  Company Number: CR-ROCHE-10000371963

PATIENT
  Sex: Female

DRUGS (1)
  1. KADCYLA [Suspect]
     Active Substance: ADO-TRASTUZUMAB EMTANSINE
     Indication: Metastasis
     Route: 065
     Dates: start: 20250818

REACTIONS (2)
  - Arthralgia [Unknown]
  - Monoplegia [Unknown]
